FAERS Safety Report 7522801-3 (Version None)
Quarter: 2011Q2

REPORT INFORMATION
  Report Type: 
  Country: None (occurrence: None)
  Receive Date: 20110603
  Receipt Date: 20110524
  Transmission Date: 20111010
  Serious: Yes (Hospitalization)
  Sender: FDA-Public Use
  Company Number: JP-PFIZER INC-2011032253

PATIENT
  Age: 39 Year
  Sex: Female
  Weight: 58 kg

DRUGS (4)
  1. CELECOXIB [Suspect]
     Indication: CERVICOBRACHIAL SYNDROME
     Dosage: 100 MG, 2X/DAY
     Route: 048
     Dates: start: 20101213, end: 20101219
  2. MYONAL [Suspect]
     Dosage: 50 MG, 2X/DAY
     Route: 048
     Dates: start: 20101213, end: 20101219
  3. SENNARIDE [Concomitant]
  4. MUCOSTA [Suspect]
     Dosage: 100 MG, 2X/DAY
     Route: 048
     Dates: start: 20101213, end: 20101219

REACTIONS (4)
  - DRUG ERUPTION [None]
  - PYREXIA [None]
  - HEPATIC FUNCTION ABNORMAL [None]
  - WHITE BLOOD CELL COUNT INCREASED [None]
